FAERS Safety Report 6205760-5 (Version None)
Quarter: 2009Q2

REPORT INFORMATION
  Report Type: 
  Country: None (occurrence: None)
  Receive Date: 20090527
  Receipt Date: 20090422
  Transmission Date: 20091009
  Serious: No
  Sender: FDA-Public Use
  Company Number: US-ABBOTT-09P-163-0569819-00

PATIENT
  Sex: Male

DRUGS (2)
  1. SIMCOR [Suspect]
     Indication: DRUG USE FOR UNKNOWN INDICATION
     Dosage: 500/20MG ONCE DAILY
     Dates: start: 20090301, end: 20090401
  2. SIMCOR [Suspect]
     Dosage: 1000/40MG: TWO 500/20MG TABLETS A DAY
     Dates: start: 20090401

REACTIONS (4)
  - ASTHENIA [None]
  - FLUSHING [None]
  - MYALGIA [None]
  - PRURITUS GENERALISED [None]
